FAERS Safety Report 10387549 (Version 1)
Quarter: 2014Q3

REPORT INFORMATION
  Report Type: Spontaneous
  Country: US (occurrence: US)
  Receive Date: 20140815
  Receipt Date: 20140815
  Transmission Date: 20150326
  Serious: No
  Sender: FDA-Public Use
  Company Number: US-TARO-2014TAR00080

PATIENT
  Sex: Male

DRUGS (2)
  1. JOCK ITCH [Suspect]
     Active Substance: CLOTRIMAZOLE\TOLNAFTATE
     Dosage: UNK, ONCE
     Route: 048
     Dates: start: 20140618, end: 20140618
  2. JOCK ITCH [Suspect]
     Active Substance: CLOTRIMAZOLE\TOLNAFTATE
     Dosage: UNK

REACTIONS (3)
  - Oral discomfort [Recovered/Resolved]
  - Accidental exposure to product [Recovered/Resolved]
  - Paraesthesia oral [Recovered/Resolved]

NARRATIVE: CASE EVENT DATE: 20140618
